FAERS Safety Report 5797903-2 (Version None)
Quarter: 2008Q2

REPORT INFORMATION
  Report Type: 
  Country: None (occurrence: None)
  Receive Date: 20080630
  Receipt Date: 20080616
  Transmission Date: 20081010
  Serious: Yes (Hospitalization)
  Sender: FDA-Public Use
  Company Number: FR-1166423

PATIENT
  Age: 6 Year
  Sex: Male

DRUGS (4)
  1. MAXITROL [Suspect]
     Dosage: OPHTHALMIC
     Route: 047
     Dates: start: 20080117, end: 20080118
  2. ATROPINE SULFATE [Suspect]
     Dosage: OPHTHALMIC
     Route: 047
     Dates: start: 20080117, end: 20080118
  3. RIFAMYCINE (RIFAMYCIN SODIUM) [Concomitant]
  4. DACUDOSES (NATUSAN) [Concomitant]

REACTIONS (6)
  - DACRYOCYSTITIS [None]
  - EYE SWELLING [None]
  - EYELID OEDEMA [None]
  - FISTULA [None]
  - LACRIMATION INCREASED [None]
  - MYDRIASIS [None]
